FAERS Safety Report 7912894-3 (Version None)
Quarter: 2011Q4

REPORT INFORMATION
  Report Type: 
  Country: None (occurrence: None)
  Receive Date: 20111114
  Receipt Date: 20111103
  Transmission Date: 20120403
  Serious: Yes (Other)
  Sender: FDA-Public Use
  Company Number: US-PFIZER INC-2011272818

PATIENT
  Age: 18 Year
  Sex: Female

DRUGS (2)
  1. RAPAMUNE [Suspect]
     Indication: HEART TRANSPLANT
     Dosage: 12 MG, 3X/DAY
  2. PROGRAF [Suspect]
     Indication: HEART TRANSPLANT

REACTIONS (3)
  - IMMUNOSUPPRESSANT DRUG LEVEL DECREASED [None]
  - DRUG LEVEL BELOW THERAPEUTIC [None]
  - DRUG RESISTANCE [None]
